FAERS Safety Report 6121018-7 (Version None)
Quarter: 2009Q1

REPORT INFORMATION
  Report Type: 
  Country: None (occurrence: None)
  Receive Date: 20090317
  Receipt Date: 20090310
  Transmission Date: 20090719
  Serious: Yes (Other)
  Sender: FDA-Public Use
  Company Number: PHHY2009MX08551

PATIENT
  Age: 54 Year
  Sex: Female

DRUGS (1)
  1. DIOVAN HCT [Suspect]
     Indication: HYPERTENSION
     Dosage: 2 TABLETS (320 MG VALSARTAN/25 MG HYDROCHLOROTHIAZIDE) PER DAY
     Route: 048

REACTIONS (3)
  - ABASIA [None]
  - INTERVERTEBRAL DISC PROTRUSION [None]
  - SPINAL DISORDER [None]
